FAERS Safety Report 18321442 (Version 1)
Quarter: 2020Q3

REPORT INFORMATION
  Report Type: Spontaneous
  Country: US (occurrence: US)
  Receive Date: 20200928
  Receipt Date: 20200928
  Transmission Date: 20201103
  Serious: Yes (Other)
  Sender: FDA-Public Use
  Company Number: US-PURDUE-USA-2020-0167782

PATIENT
  Sex: Male

DRUGS (10)
  1. HYDROMORPHONE HCL LIQUID [Suspect]
     Active Substance: HYDROMORPHONE
     Indication: PAIN MANAGEMENT
     Dosage: UNK
     Route: 048
  2. DHC PLUS [Suspect]
     Active Substance: ACETAMINOPHEN\CAFFEINE\DIHYDROCODEINE BITARTRATE
     Indication: PAIN MANAGEMENT
     Dosage: UNK
     Route: 065
  3. MSIR [Suspect]
     Active Substance: MORPHINE SULFATE
     Indication: PAIN MANAGEMENT
     Dosage: UNK
     Route: 065
  4. HYDROCODONE BITARTRATE AND ACETAMINOPHEN [Suspect]
     Active Substance: ACETAMINOPHEN\HYDROCODONE BITARTRATE
     Indication: PAIN MANAGEMENT
     Dosage: UNK
     Route: 048
  5. OXYCODONE HCL CR TABLETS (SIMILAR TO NDA 22?272) [Suspect]
     Active Substance: OXYCODONE HYDROCHLORIDE
     Indication: PAIN MANAGEMENT
     Dosage: UNK
     Route: 048
  6. OXYFAST [Suspect]
     Active Substance: OXYCODONE
     Indication: PAIN MANAGEMENT
     Dosage: UNK
     Route: 048
  7. PALLADONE [Suspect]
     Active Substance: HYDROMORPHONE HYDROCHLORIDE
     Indication: PAIN MANAGEMENT
     Dosage: UNK
     Route: 065
  8. HYSINGLA ER [Suspect]
     Active Substance: HYDROCODONE BITARTRATE
     Indication: PAIN MANAGEMENT
     Dosage: UNK
     Route: 048
  9. TRAMADOL. [Suspect]
     Active Substance: TRAMADOL
     Indication: PAIN MANAGEMENT
     Dosage: UNK
     Route: 065
  10. PERCOCET                           /00446701/ [Suspect]
     Active Substance: ACETAMINOPHEN\OXYCODONE HYDROCHLORIDE\OXYCODONE TEREPHTHALATE
     Indication: PAIN MANAGEMENT
     Dosage: UNK
     Route: 065

REACTIONS (4)
  - Cardiac failure [Unknown]
  - General physical condition abnormal [Unknown]
  - Renal failure [Unknown]
  - Drug dependence [Unknown]
